FAERS Safety Report 25595161 (Version 3)
Quarter: 2025Q3

REPORT INFORMATION
  Report Type: Spontaneous
  Country: JP (occurrence: JP)
  Receive Date: 20250723
  Receipt Date: 20250821
  Transmission Date: 20251021
  Serious: Yes (Other)
  Sender: ASTELLAS
  Company Number: JP-ASTELLAS-2025-AER-039597

PATIENT
  Age: 73 Year
  Sex: Male

DRUGS (5)
  1. ENFORTUMAB VEDOTIN [Suspect]
     Active Substance: ENFORTUMAB VEDOTIN
     Indication: Ureteric cancer
     Route: 065
  2. ENFORTUMAB VEDOTIN [Suspect]
     Active Substance: ENFORTUMAB VEDOTIN
     Route: 065
  3. PEMBROLIZUMAB [Concomitant]
     Active Substance: PEMBROLIZUMAB
     Indication: Ureteric cancer
     Route: 065
  4. PEMBROLIZUMAB [Concomitant]
     Active Substance: PEMBROLIZUMAB
     Route: 065
  5. PEMBROLIZUMAB [Concomitant]
     Active Substance: PEMBROLIZUMAB
     Route: 065

REACTIONS (11)
  - Hydronephrosis [Unknown]
  - Urinary retention [Unknown]
  - Paralysis recurrent laryngeal nerve [Unknown]
  - Pneumonia [Unknown]
  - Haematuria [Unknown]
  - Constipation [Unknown]
  - Nausea [Unknown]
  - Pyrexia [Unknown]
  - Dysuria [Unknown]
  - Hypoaesthesia [Unknown]
  - Rash [Unknown]
